FAERS Safety Report 4690965-5 (Version None)
Quarter: 2005Q2

REPORT INFORMATION
  Report Type: 
  Country: None (occurrence: None)
  Receive Date: 20050610
  Receipt Date: 20050401
  Transmission Date: 20051028
  Serious: Yes (Hospitalization)
  Sender: FDA-Public Use
  Company Number: S05-FRA-01009-01

PATIENT
  Age: 83 Year
  Sex: Female

DRUGS (12)
  1. SEROPRAM (CITALOPRAM HYDROBROMIDE) [Suspect]
     Indication: SENILE DEMENTIA
     Dosage: 20 MG QD IV
     Route: 042
     Dates: start: 20050124, end: 20050127
  2. CETORNAN (ORNITHINE OXOGLURATE) [Suspect]
     Indication: ANOREXIA
     Dosage: 10 G QD PO
     Route: 048
     Dates: start: 20050124, end: 20050127
  3. HALOPERIDOL [Suspect]
     Indication: PRESENILE DEMENTIA
     Dosage: 2 MG QD PO
     Route: 048
     Dates: start: 20050124, end: 20050127
  4. CALCIPARINE [Suspect]
     Indication: CARDIAC FIBRILLATION
     Dosage: 0.8 ML QD SC
     Route: 058
     Dates: start: 20050124, end: 20050127
  5. DEBRIDAT [Concomitant]
  6. MICONAZOLE NITRATE [Concomitant]
  7. ARICEPT [Concomitant]
  8. CORDARONE [Concomitant]
  9. AMLODIPINE BESYLATE [Concomitant]
  10. PREVISCAN (FLUINDIONE) [Concomitant]
  11. ALDALIX [Concomitant]
  12. IMOVANE (ZOPICLONE) [Concomitant]

REACTIONS (1)
  - HEPATIC STEATOSIS [None]
